FAERS Safety Report 8910273 (Version 2)
Quarter: 2013Q1

REPORT INFORMATION
  Report Type: Report from Study
  Country: US (occurrence: US)
  Receive Date: 20121114
  Receipt Date: 20130207
  Transmission Date: 20140127
  Serious: Yes (Hospitalization)
  Sender: FDA-Public Use
  Company Number: US-US-EMD SERONO, INC.-7173038

PATIENT
  Sex: Male
  Weight: 72 kg

DRUGS (1)
  1. REBIF [Suspect]
     Indication: PRODUCT USED FOR UNKNOWN INDICATION
     Route: 058
     Dates: start: 20020705

REACTIONS (3)
  - Cerebral haemorrhage [Unknown]
  - Urinary tract infection [Unknown]
  - Injection site erythema [Not Recovered/Not Resolved]
